FAERS Safety Report 4773621-4 (Version None)
Quarter: 2005Q3

REPORT INFORMATION
  Report Type: 
  Country: None (occurrence: None)
  Receive Date: 20050914
  Receipt Date: 20041105
  Transmission Date: 20060218
  Serious: Yes (Hospitalization)
  Sender: FDA-Public Use
  Company Number: 163-20785-04110120(0)

PATIENT
  Age: 61 Year
  Sex: Male
  Weight: 86.3 kg

DRUGS (3)
  1. THALOMID [Suspect]
     Indication: MULTIPLE MYELOMA
     Dosage: 200 MG DAILY ORAL
     Route: 048
     Dates: start: 20020926, end: 20021204
  2. DEXAMETHASONE [Suspect]
     Indication: MULTIPLE MYELOMA
     Dosage: SEE IMAGE
     Dates: start: 20020926
  3. ZOLEDRONIC ACID (ZOLEDRONIC ACID) [Suspect]
     Indication: MULTIPLE MYELOMA
     Dosage: SEE IMAGE
     Route: 042
     Dates: start: 20020926

REACTIONS (1)
  - DEEP VEIN THROMBOSIS [None]
